FAERS Safety Report 11720908 (Version 1)
Quarter: 2015Q4

REPORT INFORMATION
  Report Type: Spontaneous
  Country: US (occurrence: US)
  Receive Date: 20151110
  Receipt Date: 20151110
  Transmission Date: 20160304
  Serious: No
  Sender: FDA-Public Use
  Company Number: US-SA-2015SA137648

PATIENT
  Age: 56 Year
  Sex: Male

DRUGS (9)
  1. CLARITIN [Concomitant]
     Active Substance: LORATADINE
     Dosage: 10MG
  2. VITAMIN D [Concomitant]
     Active Substance: CHOLECALCIFEROL
     Dosage: STRENGTH: 2000MG
  3. TENORMIN [Concomitant]
     Active Substance: ATENOLOL
     Dosage: STRENGTH: 100MG
  4. ZOLOFT [Concomitant]
     Active Substance: SERTRALINE HYDROCHLORIDE
     Dosage: STRENGTH: 100MG
  5. FELBATOL [Concomitant]
     Active Substance: FELBAMATE
     Dosage: STRENGTH:600MG
  6. VIMPAT [Concomitant]
     Active Substance: LACOSAMIDE
     Dosage: STRENGTH: 200MG
  7. PRALUENT [Suspect]
     Active Substance: ALIROCUMAB
     Indication: BLOOD CHOLESTEROL
     Route: 065
     Dates: start: 20150902
  8. ALIROCUMAB PREFILLED PEN [Concomitant]
     Dates: start: 20150902
  9. ASPIRIN. [Concomitant]
     Active Substance: ASPIRIN
     Dosage: STRENGTH: 325 MG

REACTIONS (1)
  - Dyspnoea [Unknown]

NARRATIVE: CASE EVENT DATE: 20150903
